FAERS Safety Report 8463774-9 (Version None)
Quarter: 2012Q2

REPORT INFORMATION
  Report Type: 
  Country: None (occurrence: None)
  Receive Date: 20120625
  Receipt Date: 20120620
  Transmission Date: 20120825
  Serious: Yes (Hospitalization)
  Sender: FDA-Public Use
  Company Number: US-TEVA-344609USA

PATIENT
  Age: 68 Year
  Sex: Female
  Weight: 105 kg

DRUGS (21)
  1. GENISTEIN [Concomitant]
     Dates: start: 20090101
  2. ONDANSETRON [Concomitant]
     Dates: start: 20090101
  3. TYLOX [Concomitant]
     Dates: start: 20111018
  4. OMEPRAZOLE [Concomitant]
     Dates: start: 20090930
  5. LOPERAMIDE [Concomitant]
     Dates: start: 20091001
  6. POTASSIUM CHLORIDE [Concomitant]
     Dates: start: 20090101
  7. PROCHLORPERAZINE MALEATE [Concomitant]
     Dates: start: 20090101
  8. RITUXIMAB [Suspect]
     Indication: NON-HODGKIN'S LYMPHOMA
     Dosage: DAY 1 OF EACH 28 DAY CYCLE,
     Dates: start: 20120327
  9. LEVOTHYROXINE [Concomitant]
     Dates: start: 20020101
  10. COLECALCIFEROL [Concomitant]
     Dates: start: 20090101
  11. LORAZEPAM [Concomitant]
     Dates: start: 20091119
  12. TREANDA [Suspect]
     Indication: NON-HODGKIN'S LYMPHOMA
     Dosage: DAY 1 AND 2 OF EACH 28 DAY CYCLE
     Route: 042
     Dates: start: 20120328
  13. ZINC SULFATE [Concomitant]
     Dates: start: 20090101
  14. ACYCLOVIR [Concomitant]
     Dates: start: 20091201
  15. SERTRALINE HYDROCHLORIDE [Concomitant]
     Dates: start: 20090901
  16. LACTOBACILLUS ACIDOPHILUS [Concomitant]
     Dates: start: 20100101
  17. ALLOPURINOL [Concomitant]
     Dates: start: 20120325
  18. METOPROLOL SUCCINATE [Concomitant]
     Dates: start: 20120326
  19. FUROSEMIDE [Concomitant]
     Dates: start: 20090101
  20. ARBUTAMINE HYDROCHLORIDE [Concomitant]
  21. IBUPROFEN [Concomitant]
     Dates: start: 19920101

REACTIONS (2)
  - PANCYTOPENIA [None]
  - HYPOTENSION [None]
